FAERS Safety Report 5055263-9 (Version None)
Quarter: 2006Q3

REPORT INFORMATION
  Report Type: 
  Country: None (occurrence: None)
  Receive Date: 20060714
  Receipt Date: 20060703
  Transmission Date: 20061208
  Serious: Yes (Other)
  Sender: FDA-Public Use
  Company Number: 2006029311

PATIENT
  Age: 71 Year
  Sex: Female
  Weight: 73 kg

DRUGS (6)
  1. SU-011, 248 (SUNITINIB MALEATE) [Suspect]
     Indication: RENAL CELL CARCINOMA STAGE UNSPECIFIED
     Dosage: 50 MG (50 MG, 1 IN 1 D), ORAL
     Route: 048
     Dates: start: 20060118, end: 20060131
  2. ACETYLSALICYLATE LYSINE (ACETYLSALICYLATE LYSINE) [Concomitant]
  3. EZETIMIBE (EZETIMIBE) [Concomitant]
  4. ROSUVASTATIN (ROSUVASTATIN) [Concomitant]
  5. TELMISARTAN (TELMISARTAN [Concomitant]
  6. BISOPROLOL FUMARATE [Concomitant]

REACTIONS (3)
  - ACUTE CORONARY SYNDROME [None]
  - ARTERIOSCLEROSIS CORONARY ARTERY [None]
  - MYOCARDIAL ISCHAEMIA [None]
